FAERS Safety Report 5796574-9 (Version None)
Quarter: 2008Q3

REPORT INFORMATION
  Report Type: 
  Country: None (occurrence: None)
  Receive Date: 20080701
  Receipt Date: 20080618
  Transmission Date: 20090109
  Serious: Yes (Hospitalization, Other)
  Sender: FDA-Public Use
  Company Number: IE-ELI_LILLY_AND_COMPANY-IE200712004109

PATIENT
  Sex: Female

DRUGS (8)
  1. CYMBALTA [Suspect]
     Indication: DEPRESSION
     Dosage: 60 MG, DAILY (1/D)
     Route: 048
     Dates: start: 20070323, end: 20071018
  2. QUININE [Concomitant]
     Dosage: UNK, UNKNOWN
  3. CODEINE [Concomitant]
     Dosage: UNK, UNKNOWN
  4. ACETAMINOPHEN [Concomitant]
     Dosage: UNK, UNKNOWN
  5. METOCLOPRAMIDE [Concomitant]
     Dosage: UNK, UNKNOWN
  6. ATENOLOL [Concomitant]
     Dosage: UNK, UNKNOWN
  7. LANSOPRAZOLE [Concomitant]
     Dosage: UNK, UNKNOWN
  8. ROSUVASTATIN [Concomitant]
     Dosage: 20 MG, UNKNOWN
     Route: 048

REACTIONS (1)
  - HEPATIC FAILURE [None]
